FAERS Safety Report 15301349 (Version 1)
Quarter: 2018Q3

REPORT INFORMATION
  Report Type: Spontaneous
  Country: BR (occurrence: BR)
  Receive Date: 20180821
  Receipt Date: 20180821
  Transmission Date: 20181010
  Serious: Yes (Hospitalization)
  Sender: FDA-Public Use
  Company Number: BR-SA-2018SA176239

PATIENT
  Age: 34 Year
  Sex: Male
  Weight: 60 kg

DRUGS (5)
  1. THYMOGLOBULINE [Suspect]
     Active Substance: LAPINE T-LYMPHOCYTE IMMUNE GLOBULIN
     Indication: IMMUNOSUPPRESSION
     Dosage: 200 MG, QD
     Route: 042
     Dates: start: 20180623, end: 20180624
  2. HYDROCORTISONE. [Concomitant]
     Active Substance: HYDROCORTISONE
     Dosage: 300 MG, QD
     Route: 042
     Dates: start: 20180623, end: 20180623
  3. RANITIDINE. [Concomitant]
     Active Substance: RANITIDINE
     Dosage: 100 MG, QD
     Route: 042
     Dates: start: 20180623
  4. METAMIZOLE [Concomitant]
     Active Substance: METAMIZOLE
     Dosage: 1000 MG, QD
     Route: 042
     Dates: start: 20180623, end: 20180623
  5. CEFAZOLINE [CEFAZOLIN] [Concomitant]
     Dosage: 1 G, TID
     Route: 042
     Dates: start: 20180623, end: 20180624

REACTIONS (4)
  - Haemoglobin decreased [Recovered/Resolved]
  - Haematocrit decreased [Recovered/Resolved]
  - Hypotension [Recovered/Resolved]
  - Platelet count decreased [Recovered/Resolved]

NARRATIVE: CASE EVENT DATE: 20180623
